FAERS Safety Report 6173890-2 (Version None)
Quarter: 2009Q2

REPORT INFORMATION
  Report Type: 
  Country: None (occurrence: None)
  Receive Date: 20090430
  Receipt Date: 20090427
  Transmission Date: 20091009
  Serious: Yes (Other)
  Sender: FDA-Public Use
  Company Number: US-ALLERGAN-0902130US

PATIENT
  Sex: Male
  Weight: 55.329 kg

DRUGS (1)
  1. BOTOX [Suspect]
     Indication: PAIN
     Dosage: UNK, SINGLE
     Route: 030
     Dates: start: 20080904, end: 20080904

REACTIONS (12)
  - DIZZINESS [None]
  - DRUG HYPERSENSITIVITY [None]
  - HEADACHE [None]
  - MIGRAINE [None]
  - MUSCLE SPASMS [None]
  - MUSCULAR WEAKNESS [None]
  - MYALGIA [None]
  - NECK PAIN [None]
  - PAIN [None]
  - PAIN OF SKIN [None]
  - PARALYSIS [None]
  - VISION BLURRED [None]
